FAERS Safety Report 9603423 (Version 7)
Quarter: 2014Q2

REPORT INFORMATION
  Report Type: Report from Study
  Country: CA (occurrence: CA)
  Receive Date: 20131007
  Receipt Date: 20140515
  Transmission Date: 20141212
  Serious: Yes (Hospitalization, Other)
  Sender: FDA-Public Use
  Company Number: CA-ROCHE-1285359

PATIENT
  Age: 65 Year
  Sex: Male
  Weight: 95 kg

DRUGS (10)
  1. ACTEMRA [Suspect]
     Indication: RHEUMATOID ARTHRITIS
     Route: 042
     Dates: start: 20131003, end: 20140314
  2. METHOTREXATE [Concomitant]
  3. PREDNISONE [Concomitant]
  4. RAMIPRIL [Concomitant]
  5. DEPO-MEDROL [Concomitant]
  6. LORAZEPAM [Concomitant]
  7. NABUMETONE [Concomitant]
  8. DOMPERIDONE [Concomitant]
  9. ENDOCET [Concomitant]
  10. CRESTOR [Concomitant]

REACTIONS (10)
  - Chest pain [Recovered/Resolved]
  - Hyperhidrosis [Unknown]
  - Dizziness [Unknown]
  - Anxiety [Recovered/Resolved]
  - Back pain [Unknown]
  - Arthralgia [Not Recovered/Not Resolved]
  - Influenza [Recovered/Resolved]
  - Eye infection [Not Recovered/Not Resolved]
  - Rash [Recovered/Resolved]
  - Dry skin [Not Recovered/Not Resolved]
